FAERS Safety Report 26075121 (Version 1)
Quarter: 2025Q4

REPORT INFORMATION
  Report Type: Spontaneous
  Country: EU (occurrence: EU)
  Receive Date: 20251121
  Receipt Date: 20251121
  Transmission Date: 20260118
  Serious: Yes (Hospitalization)
  Sender: TEVA
  Company Number: None

PATIENT
  Age: 39 Year
  Sex: Female

DRUGS (3)
  1. TRAMADOL [Suspect]
     Active Substance: TRAMADOL
     Indication: Product used for unknown indication
     Dosage: 8 LP 200MG TABLETS PER DAY (3 TABLETS AT 2PM AND 5 AT 8PM), TRAMADOL HYDROCHLORIDE
     Route: 048
     Dates: start: 2018
  2. CODEINE [Suspect]
     Active Substance: CODEINE
     Indication: Product used for unknown indication
     Dosage: 6 TABLETS OF 50 MG PER DAY
     Route: 048
     Dates: start: 2018
  3. TIANEPTINE [Suspect]
     Active Substance: TIANEPTINE
     Indication: Product used for unknown indication
     Dosage: UP TO 15 TABLETS IN A SINGLE DOSE IN THE EVENING
     Route: 048
     Dates: start: 2006

REACTIONS (3)
  - Drug use disorder [Recovering/Resolving]
  - Pharmaceutical nomadism [Recovering/Resolving]
  - Overdose [Recovering/Resolving]

NARRATIVE: CASE EVENT DATE: 20050101
